FAERS Safety Report 4797408-1 (Version None)
Quarter: 2005Q4

REPORT INFORMATION
  Report Type: 
  Country: None (occurrence: None)
  Receive Date: 20051013
  Receipt Date: 20050912
  Transmission Date: 20060501
  Serious: Yes (Death)
  Sender: FDA-Public Use
  Company Number: PHFR2005GB03021

PATIENT
  Age: 39 Year
  Sex: Male

DRUGS (1)
  1. CARBAMAZEPINE [Suspect]
     Dosage: 200 MG/DAY
     Route: 065

REACTIONS (2)
  - ACCIDENTAL DEATH [None]
  - DRUG TOXICITY [None]
